FAERS Safety Report 17011967 (Version 1)
Quarter: 2019Q4

REPORT INFORMATION
  Report Type: Spontaneous
  Country: DE (occurrence: DE)
  Receive Date: 20191108
  Receipt Date: 20191108
  Transmission Date: 20200122
  Serious: Yes (Other)
  Sender: FDA-Public Use
  Company Number: DE-TAKEDA-2019TUS063732

PATIENT
  Age: 42 Year
  Sex: Female

DRUGS (2)
  1. MEZAVANT [Concomitant]
     Active Substance: MESALAMINE
     Dosage: 4800 MILLIGRAM, QD
     Dates: start: 20120130
  2. ENTYVIO [Suspect]
     Active Substance: VEDOLIZUMAB
     Indication: COLITIS ULCERATIVE
     Dosage: 300 MILLIGRAM
     Route: 065
     Dates: start: 20190211

REACTIONS (1)
  - Embolic stroke [Recovered/Resolved]

NARRATIVE: CASE EVENT DATE: 20191031
